FAERS Safety Report 9860763 (Version 1)
Quarter: 2014Q1

REPORT INFORMATION
  Report Type: Spontaneous
  Country: US (occurrence: US)
  Receive Date: 20140202
  Receipt Date: 20140202
  Transmission Date: 20141002
  Serious: No
  Sender: FDA-Public Use
  Company Number: US-ALLERGAN-1301020US

PATIENT
  Age: 68 Year
  Sex: Female

DRUGS (2)
  1. BOTOX COSMETIC [Suspect]
     Indication: SKIN WRINKLING
     Dosage: UNK, SINGLE
     Route: 030
     Dates: start: 20121217, end: 20121217
  2. BOTOX COSMETIC [Suspect]
     Indication: SKIN WRINKLING

REACTIONS (5)
  - Fatigue [Recovered/Resolved]
  - Diplopia [Recovered/Resolved]
  - Facial paresis [Not Recovered/Not Resolved]
  - Diarrhoea [Recovered/Resolved]
  - Eyelid ptosis [Not Recovered/Not Resolved]
